FAERS Safety Report 21484489 (Version 1)
Quarter: 2022Q4

REPORT INFORMATION
  Report Type: Spontaneous
  Country: US (occurrence: US)
  Receive Date: 20221020
  Receipt Date: 20221020
  Transmission Date: 20230113
  Serious: No
  Sender: FDA-Public Use
  Company Number: US-CELLTRION INC.-2022US010109

PATIENT

DRUGS (1)
  1. INFLECTRA [Suspect]
     Active Substance: INFLIXIMAB-DYYB
     Indication: Product used for unknown indication
     Dosage: DIRECTIONS: 742MG (7.5MG/KG IV EVERY 7 WEEKS) QUANTITY: 800 REFILLS: 6 (PATIENT^S WEIGHT: 218 LBS)
     Route: 042

REACTIONS (1)
  - Unevaluable event [Unknown]
